FAERS Safety Report 6174319-0 (Version None)
Quarter: 2009Q2

REPORT INFORMATION
  Report Type: 
  Country: None (occurrence: None)
  Receive Date: 20090430
  Receipt Date: 20080515
  Transmission Date: 20091009
  Serious: No
  Sender: FDA-Public Use
  Company Number: US-ASTRAZENECA-2008UW09981

PATIENT
  Age: 72 Year
  Sex: Female

DRUGS (12)
  1. NEXIUM [Suspect]
     Indication: GASTROOESOPHAGEAL REFLUX DISEASE
     Route: 048
  2. DEXAPHENADRINE [Concomitant]
  3. TRIAMTERENE [Concomitant]
  4. LIPITOR [Concomitant]
  5. AMBIEN CR [Concomitant]
  6. TYLENOL [Concomitant]
  7. GLUCOSAMINE [Concomitant]
  8. CONDROITIN [Concomitant]
  9. CENTRUM SILVER [Concomitant]
  10. ASPIRIN [Concomitant]
  11. CALCIUM [Concomitant]
  12. FLAX SEED OIL [Concomitant]

REACTIONS (5)
  - ABNORMAL DREAMS [None]
  - DRY MOUTH [None]
  - INSOMNIA [None]
  - OEDEMA PERIPHERAL [None]
  - VULVOVAGINAL PRURITUS [None]
